FAERS Safety Report 23687382 (Version 1)
Quarter: 2024Q1

REPORT INFORMATION
  Report Type: Spontaneous
  Country: AU (occurrence: AU)
  Receive Date: 20240329
  Receipt Date: 20240329
  Transmission Date: 20240410
  Serious: Yes (Other)
  Sender: FDA-Public Use
  Company Number: None

PATIENT
  Age: 39 Year
  Sex: Female

DRUGS (1)
  1. OPTIRAY 350 [Suspect]
     Active Substance: IOVERSOL
     Indication: Product used for unknown indication

REACTIONS (6)
  - Paraesthesia oral [Unknown]
  - Oropharyngeal discomfort [Unknown]
  - Wheezing [Unknown]
  - Dyspnoea [Unknown]
  - Oral pruritus [Unknown]
  - Nausea [Unknown]
